FAERS Safety Report 17871206 (Version 1)
Quarter: 2020Q2

REPORT INFORMATION
  Report Type: Spontaneous
  Country: FR (occurrence: FR)
  Receive Date: 20200608
  Receipt Date: 20200608
  Transmission Date: 20200714
  Serious: Yes (Hospitalization)
  Sender: FDA-Public Use
  Company Number: FR-PFIZER INC-2020220731

PATIENT
  Age: 24 Year
  Sex: Female

DRUGS (2)
  1. LEXOMIL [Suspect]
     Active Substance: BROMAZEPAM
     Dosage: 36 MG
  2. XANAX [Suspect]
     Active Substance: ALPRAZOLAM
     Dosage: UNK

REACTIONS (5)
  - Drug abuse [Recovered/Resolved]
  - Anxiety [Recovered/Resolved]
  - Hypokalaemia [Recovered/Resolved]
  - Housebound [Recovered/Resolved]
  - Altered state of consciousness [Recovered/Resolved]
